FAERS Safety Report 4358462-4 (Version None)
Quarter: 2004Q2

REPORT INFORMATION
  Report Type: 
  Country: None (occurrence: None)
  Receive Date: 20040514
  Receipt Date: 20020107
  Transmission Date: 20050107
  Serious: Yes (Hospitalization, Other)
  Sender: FDA-Public Use
  Company Number: PHFR2002GB00509

PATIENT
  Age: 57 Year
  Sex: Male

DRUGS (3)
  1. MYCOPHENOLATE SODIUM [Concomitant]
     Indication: BONE MARROW CONDITIONING REGIMEN
     Route: 065
  2. CLOZARIL [Suspect]
     Dosage: 500MG/DAY
     Route: 048
  3. CLOZARIL [Suspect]
     Dosage: 300MG/DAY
     Route: 048
     Dates: start: 19961101

REACTIONS (4)
  - DIALYSIS [None]
  - HAEMOGLOBIN DECREASED [None]
  - NEPHROTIC SYNDROME [None]
  - RENAL TRANSPLANT [None]
